FAERS Safety Report 4463821-5 (Version None)
Quarter: 2004Q3

REPORT INFORMATION
  Report Type: 
  Country: None (occurrence: None)
  Receive Date: 20040929
  Receipt Date: 20040920
  Transmission Date: 20050211
  Serious: Yes (Death, Hospitalization)
  Sender: FDA-Public Use
  Company Number: 2004EU001748

PATIENT
  Age: 60 Year
  Sex: Male

DRUGS (1)
  1. FK506 (TACROLIMUS) FORMULATION UNKNOWN [Suspect]
     Indication: LIVER TRANSPLANT
     Dosage: D

REACTIONS (5)
  - ASCITES [None]
  - CHOLESTASIS [None]
  - INFECTION [None]
  - MULTI-ORGAN FAILURE [None]
  - RENAL FAILURE [None]
